FAERS Safety Report 25230387 (Version 1)
Quarter: 2025Q2

REPORT INFORMATION
  Report Type: Spontaneous
  Country: US (occurrence: None)
  Receive Date: 20250422
  Receipt Date: 20250422
  Transmission Date: 20250717
  Serious: Yes (Death)
  Sender: FDA-CTU
  Company Number: None

PATIENT
  Age: 88 Year
  Sex: Male

DRUGS (15)
  1. REPATHA [Suspect]
     Active Substance: EVOLOCUMAB
     Indication: Hyperlipidaemia
     Dosage: OTHER FREQUENCY : Q 14 DAYS;?
     Route: 058
     Dates: start: 20240924
  2. TRULICITY 1.5MG/0.5ML SDP 0.5ML [Concomitant]
  3. BREZTRI AERO SPHERE INHALER 120 INH [Concomitant]
  4. CYANOCOBALAMIN 1000MCG/ML INJ, 10ML [Concomitant]
  5. GABAPENTIN 400MG CAPSULES [Concomitant]
  6. ALLOPURINOL 300MG TABLETS [Concomitant]
  7. BUMETANIDE 0.5MG TABLETS [Concomitant]
  8. VASCEPA 1GM CAPSULES [Concomitant]
  9. VITAMIN D 2,000IU SOFTGEL CAPS [Concomitant]
  10. ASPIRIN 325MG EC TABLETS [Concomitant]
  11. CARVEDILOL 6.25MG TABLETS [Concomitant]
  12. FINASTERIDE [Concomitant]
     Active Substance: FINASTERIDE
  13. FOLIC ACID 800MCG TABLETS [Concomitant]
  14. LEVOTHYROXINE 0.05MG (50MCG) TAB [Concomitant]
  15. TAMSULOSIN [Concomitant]
     Active Substance: TAMSULOSIN

REACTIONS (1)
  - Death [None]

NARRATIVE: CASE EVENT DATE: 20250422
